FAERS Safety Report 5895104-0 (Version None)
Quarter: 2008Q3

REPORT INFORMATION
  Report Type: 
  Country: None (occurrence: None)
  Receive Date: 20080924
  Receipt Date: 20080911
  Transmission Date: 20090109
  Serious: Yes (Other)
  Sender: FDA-Public Use
  Company Number: US-PFIZER INC-2008068496

PATIENT
  Age: 13 Year
  Sex: Male
  Weight: 48.8 kg

DRUGS (1)
  1. SOLU-MEDROL [Suspect]
     Indication: CROHN'S DISEASE
     Route: 042
     Dates: start: 20080730

REACTIONS (2)
  - DIARRHOEA HAEMORRHAGIC [None]
  - DRUG EFFECT DECREASED [None]
